FAERS Safety Report 20623899 (Version 4)
Quarter: 2022Q4

REPORT INFORMATION
  Report Type: Spontaneous
  Country: FR (occurrence: FR)
  Receive Date: 20220322
  Receipt Date: 20221024
  Transmission Date: 20230113
  Serious: Yes (Life-Threatening, Other)
  Sender: FDA-Public Use
  Company Number: FR-BAUSCH-BL-2022-007056

PATIENT
  Age: 59 Year
  Sex: Male

DRUGS (5)
  1. TETRABENAZINE [Suspect]
     Active Substance: TETRABENAZINE
     Indication: Huntington^s disease
     Dosage: THRICE DAILY
     Route: 048
     Dates: start: 20191024
  2. TETRABENAZINE [Suspect]
     Active Substance: TETRABENAZINE
     Dosage: MAJORATION AT UNKNOWN DOSES
     Route: 048
  3. TETRABENAZINE [Suspect]
     Active Substance: TETRABENAZINE
     Route: 048
     Dates: start: 20191031
  4. TETRABENAZINE [Suspect]
     Active Substance: TETRABENAZINE
     Dosage: EVERY 8 HOUR(S) 37.5 MG +25 MG + 37.5 MG DAILY
     Route: 048
     Dates: start: 20191113, end: 20191206
  5. FOLIC ACID [Concomitant]
     Active Substance: FOLIC ACID
     Indication: Supplementation therapy

REACTIONS (4)
  - Thrombocytopenia [Recovered/Resolved]
  - Agranulocytosis [Recovered/Resolved]
  - Nausea [Unknown]
  - Fatigue [Unknown]

NARRATIVE: CASE EVENT DATE: 20191001
